FAERS Safety Report 25801764 (Version 1)
Quarter: 2025Q3

REPORT INFORMATION
  Report Type: Spontaneous
  Country: EU (occurrence: EU)
  Receive Date: 20250915
  Receipt Date: 20250915
  Transmission Date: 20251020
  Serious: Yes (Other)
  Sender: ENDO
  Company Number: EU-ENDO USA, INC.-2025-001872

PATIENT
  Sex: Male

DRUGS (1)
  1. AVEED [Suspect]
     Active Substance: TESTOSTERONE UNDECANOATE
     Indication: Transgender hormonal therapy
     Route: 065

REACTIONS (3)
  - Rhabdomyolysis [Unknown]
  - Renal failure [Unknown]
  - Off label use [Unknown]
